FAERS Safety Report 4359238-4 (Version None)
Quarter: 2004Q2

REPORT INFORMATION
  Report Type: 
  Country: None (occurrence: None)
  Receive Date: 20040517
  Receipt Date: 20040517
  Transmission Date: 20050107
  Serious: Yes (Hospitalization)
  Sender: FDA-Public Use
  Company Number: None

PATIENT
  Age: 82 Year
  Sex: Male

DRUGS (11)
  1. NIFEDIPINE [Suspect]
     Indication: HYPERTENSION
     Dosage: 30 MG PO QD
     Route: 048
     Dates: start: 20031216
  2. ISOSORBIDE SA [Suspect]
     Indication: ANGINA PECTORIS
     Dosage: 60 MG PO QD
     Route: 048
     Dates: start: 20031216
  3. LORTAB [Concomitant]
  4. AUGMENTIN [Concomitant]
  5. CLOPIDOGREL BISULFATE [Concomitant]
  6. FOSINOPRIL SODIUM [Concomitant]
  7. PREDNISONE [Concomitant]
  8. FLUOXETINE [Concomitant]
  9. NITROGLYCERIN [Concomitant]
  10. ASPIRIN [Concomitant]
  11. GLYBURIDE [Concomitant]

REACTIONS (1)
  - HYPOTENSION [None]
